FAERS Safety Report 6179166-1 (Version None)
Quarter: 2009Q2

REPORT INFORMATION
  Report Type: 
  Country: None (occurrence: None)
  Receive Date: 20090505
  Receipt Date: 20090428
  Transmission Date: 20091009
  Serious: Yes (Other)
  Sender: FDA-Public Use
  Company Number: US-BAYER-200841537NA

PATIENT
  Age: 41 Year
  Sex: Female
  Weight: 86 kg

DRUGS (3)
  1. YAZ [Suspect]
     Indication: MENOMETRORRHAGIA
     Route: 048
     Dates: start: 20081201
  2. MULTI-VITAMIN [Concomitant]
  3. LOVAZA [Concomitant]

REACTIONS (3)
  - DEPRESSION [None]
  - EMOTIONAL DISORDER [None]
  - SUICIDAL IDEATION [None]
